FAERS Safety Report 17182184 (Version 1)
Quarter: 2019Q4

REPORT INFORMATION
  Report Type: Spontaneous
  Country: US (occurrence: US)
  Receive Date: 20191126
  Receipt Date: 20191126
  Transmission Date: 20200122
  Serious: No
  Sender: FDA-Public Use
  Company Number: None

PATIENT
  Age: 82 Year
  Sex: Female
  Weight: 66.68 kg

DRUGS (8)
  1. VERAPAMIL [Concomitant]
     Active Substance: VERAPAMIL HYDROCHLORIDE
  2. VITAMINS [Concomitant]
     Active Substance: VITAMINS
  3. SYNTHROID [Concomitant]
     Active Substance: LEVOTHYROXINE SODIUM
  4. METOPROLOL. [Concomitant]
     Active Substance: METOPROLOL
  5. PROLIA [Suspect]
     Active Substance: DENOSUMAB
     Indication: OSTEOPOROSIS
     Route: 058
     Dates: start: 20190827
  6. COQ10 [Concomitant]
     Active Substance: UBIDECARENONE
  7. LAVALO [Concomitant]
  8. CALCIUM MAGNESIUM [Concomitant]
     Active Substance: CALCIUM\MAGNESIUM

REACTIONS (4)
  - Musculoskeletal pain [None]
  - Pain [None]
  - Musculoskeletal stiffness [None]
  - Mobility decreased [None]

NARRATIVE: CASE EVENT DATE: 20190827
